FAERS Safety Report 21519821 (Version 1)
Quarter: 2022Q4

REPORT INFORMATION
  Report Type: Spontaneous
  Country: US (occurrence: US)
  Receive Date: 20221028
  Receipt Date: 20221028
  Transmission Date: 20230113
  Serious: Yes (Hospitalization, Other)
  Sender: FDA-Public Use
  Company Number: US-MLMSERVICE-20221014-3863281-3

PATIENT
  Age: 12 Year
  Sex: Female
  Weight: 54.1 kg

DRUGS (6)
  1. PROPOFOL [Suspect]
     Active Substance: PROPOFOL
     Indication: Maintenance of anaesthesia
     Dosage: 1.85 MG/KG
  2. PROPOFOL [Suspect]
     Active Substance: PROPOFOL
     Indication: Induction of anaesthesia
     Dosage: TWO ADDITIONAL 50 MG BOLUSES
  3. PROPOFOL [Suspect]
     Active Substance: PROPOFOL
     Dosage: FREQ:{TOTAL};150-200 UG KG-1 MIN-1
  4. KETAMINE HYDROCHLORIDE [Suspect]
     Active Substance: KETAMINE HYDROCHLORIDE
     Indication: Maintenance of anaesthesia
     Dosage: FREQ:{TOTAL};15-75 UG KG-1 MIN-1
  5. MIDAZOLAM [Suspect]
     Active Substance: MIDAZOLAM
     Dosage: 0.04 MG/KG
     Route: 042
  6. METHADONE [Suspect]
     Active Substance: METHADONE HYDROCHLORIDE
     Indication: Induction of anaesthesia
     Dosage: 0.2 MG/KG
     Route: 042

REACTIONS (4)
  - Respiratory depression [Recovering/Resolving]
  - Depressed level of consciousness [Recovered/Resolved]
  - Unresponsive to stimuli [Recovered/Resolved]
  - Miosis [Unknown]
